FAERS Safety Report 5128635-1 (Version None)
Quarter: 2006Q4

REPORT INFORMATION
  Report Type: 
  Country: None (occurrence: None)
  Receive Date: 20061011
  Receipt Date: 20060928
  Transmission Date: 20070319
  Serious: Yes (Other)
  Sender: FDA-Public Use
  Company Number: 2006118576

PATIENT
  Age: 88 Year
  Sex: Male
  Weight: 74.8435 kg

DRUGS (9)
  1. NEURONTIN [Suspect]
     Indication: NEUROPATHY PERIPHERAL
     Dosage: 1800 MG (990 MG, 2 IN 1 D), ORAL
     Route: 048
     Dates: end: 20060924
  2. LYRICA [Suspect]
     Indication: NEUROPATHY PERIPHERAL
     Dosage: 150 MG (50 MG, 3 IN 1 D), ORAL
     Route: 048
     Dates: start: 20060924
  3. FLORINEF [Concomitant]
  4. LASIX [Concomitant]
  5. ZOCOR [Concomitant]
  6. CYMBALTA [Concomitant]
  7. DARVOCET (DEXTROPROPOXYPHNE NAPSILATE, PARACETAMOL) [Concomitant]
  8. VICODIN [Concomitant]
  9. ASPIRIN [Concomitant]

REACTIONS (6)
  - BODY HEIGHT DECREASED [None]
  - CONSTIPATION [None]
  - DRUG INEFFECTIVE [None]
  - INSOMNIA [None]
  - MACULAR DEGENERATION [None]
  - PAIN [None]
